FAERS Safety Report 10715863 (Version 1)
Quarter: 2015Q1

REPORT INFORMATION
  Report Type: Report from Study
  Country: US (occurrence: None)
  Receive Date: 20150109
  Receipt Date: 20150109
  Transmission Date: 20150721
  Serious: Yes (Other)
  Sender: FDA-Public Use
  Company Number: 2013PROUSA03334

PATIENT
  Age: 80 Year
  Sex: Male
  Weight: 104.5 kg

DRUGS (13)
  1. MEGESTROL ACETATE (MEGESTROL ACETATE) [Concomitant]
  2. PLAVIX (CLOPIDOGREL BISULFATE) [Concomitant]
  3. LYRICA [Concomitant]
     Active Substance: PREGABALIN
  4. NILUTAMIDE (NILUTAMIDE) [Concomitant]
  5. PROVENGE [Suspect]
     Active Substance: SIPULEUCEL-T
     Indication: PROSTATE CANCER METASTATIC
     Route: 042
     Dates: start: 20121126, end: 20121126
  6. FUROSEMIDE (FUROSEMIDE SODIUM) [Concomitant]
  7. POTASSIUM CHLORIDE (POTASSIUM CHLORIDE) [Concomitant]
     Active Substance: POTASSIUM CHLORIDE
  8. SIMVASTATIN (SIMVASTATIN) [Concomitant]
     Active Substance: SIMVASTATIN
  9. EFFEXOR XR (VENLAFAXINE HYDROCHLORIDE) [Concomitant]
  10. ZANTAC [Concomitant]
     Active Substance: RANITIDINE HYDROCHLORIDE
  11. IPRATROPIUM BROMIDE AND ALBUTEROL SULFATE (IPRATROPIUM BROMIDE, SALBUTAMOL SULFATE) [Concomitant]
  12. ZOMETA [Concomitant]
     Active Substance: ZOLEDRONIC ACID
  13. TAXOTERE [Concomitant]
     Active Substance: DOCETAXEL

REACTIONS (1)
  - Device related infection [None]

NARRATIVE: CASE EVENT DATE: 20121219
